FAERS Safety Report 5521557-3 (Version None)
Quarter: 2007Q4

REPORT INFORMATION
  Report Type: 
  Country: None (occurrence: None)
  Receive Date: 20071120
  Receipt Date: 20071113
  Transmission Date: 20080405
  Serious: Yes (Hospitalization)
  Sender: FDA-Public Use
  Company Number: FR-WYE-G00606407

PATIENT
  Sex: Male

DRUGS (5)
  1. ADVIL LIQUI-GELS [Suspect]
     Indication: HEADACHE
     Dosage: 200 MG TWICE A DAY
     Route: 048
     Dates: start: 20070926, end: 20070926
  2. PERFALGAN [Suspect]
     Dosage: UNSPECIFIED
     Route: 048
     Dates: start: 20070927, end: 20070927
  3. CEBUTID [Suspect]
     Indication: HEADACHE
     Dosage: 50 MG, ONE SINGLE
     Route: 048
     Dates: start: 20070927, end: 20070927
  4. EFFERALGAN [Suspect]
     Dosage: 500 MG TWICE A DAY
     Route: 048
     Dates: start: 20070926, end: 20070926
  5. APRANAX [Suspect]
     Indication: HEADACHE
     Route: 048
     Dates: start: 20070926, end: 20070928

REACTIONS (6)
  - BLOOD MAGNESIUM INCREASED [None]
  - BLOOD PHOSPHORUS INCREASED [None]
  - HAEMATURIA [None]
  - PROTEINURIA [None]
  - PYREXIA [None]
  - RENAL DISORDER [None]
